FAERS Safety Report 16499270 (Version 1)
Quarter: 2019Q3

REPORT INFORMATION
  Report Type: Spontaneous
  Country: CH (occurrence: CH)
  Receive Date: 20190701
  Receipt Date: 20190701
  Transmission Date: 20191004
  Serious: Yes (Life-Threatening, Hospitalization, Other)
  Sender: FDA-Public Use
  Company Number: CH-TEVA-2019-CH-1069524

PATIENT
  Age: 19 Year
  Sex: Male

DRUGS (15)
  1. NOVALGIN (METAMIZOLE SODIUM) [Suspect]
     Active Substance: METAMIZOLE SODIUM
     Route: 048
     Dates: start: 20190211, end: 20190211
  2. IRFEN [Suspect]
     Active Substance: IBUPROFEN
     Route: 048
  3. DAFALGAN [Suspect]
     Active Substance: ACETAMINOPHEN
     Route: 048
  4. STILNOX [Suspect]
     Active Substance: ZOLPIDEM TARTRATE
     Route: 048
     Dates: start: 20190211, end: 20190211
  5. PANTOZOL [Suspect]
     Active Substance: PANTOPRAZOLE SODIUM
     Route: 048
     Dates: start: 20190211, end: 20190211
  6. STILNOX [Suspect]
     Active Substance: ZOLPIDEM TARTRATE
     Route: 048
  7. PANTOZOL [Suspect]
     Active Substance: PANTOPRAZOLE SODIUM
     Route: 048
  8. TEMESTA (LORAZEPAM) [Suspect]
     Active Substance: LORAZEPAM
     Route: 048
     Dates: start: 20190211, end: 20190211
  9. TEMESTA (LORAZEPAM) [Suspect]
     Active Substance: LORAZEPAM
     Route: 048
  10. NEBIDO [Concomitant]
     Active Substance: TESTOSTERONE UNDECANOATE
     Dosage: NUMBER OF UNITS IN THE INTEVAL: 2-3
     Route: 030
  11. AMLODIPIN [Suspect]
     Active Substance: AMLODIPINE BESYLATE
     Route: 048
  12. AMLODIPIN [Suspect]
     Active Substance: AMLODIPINE BESYLATE
     Route: 048
     Dates: start: 20190211, end: 20190211
  13. CATAPRESAN [Suspect]
     Active Substance: CLONIDINE
     Route: 065
  14. IRFEN [Suspect]
     Active Substance: IBUPROFEN
     Route: 048
     Dates: start: 20190211, end: 20190211
  15. DAFALGAN [Suspect]
     Active Substance: ACETAMINOPHEN
     Route: 048
     Dates: start: 20190211, end: 20190211

REACTIONS (5)
  - Toxicity to various agents [Recovered/Resolved]
  - Somnolence [Recovered/Resolved]
  - Disturbance in attention [Recovered/Resolved]
  - Coma [Recovered/Resolved]
  - Intentional overdose [Recovered/Resolved]

NARRATIVE: CASE EVENT DATE: 20190211
